FAERS Safety Report 19645492 (Version 1)
Quarter: 2021Q3

REPORT INFORMATION
  Report Type: Spontaneous
  Country: US (occurrence: US)
  Receive Date: 20210730
  Receipt Date: 20210730
  Transmission Date: 20211014
  Serious: Yes (Disabling)
  Sender: FDA-Public Use
  Company Number: None

PATIENT
  Age: 43 Year
  Sex: Female
  Weight: 56.25 kg

DRUGS (8)
  1. EMGALITY [Suspect]
     Active Substance: GALCANEZUMAB-GNLM
     Indication: MIGRAINE
     Dosage: ?QUANTITY:2 INJECTION(S);?OTHER FREQUENCY:ONCETHEN120/MONTHL;?
     Route: 058
     Dates: start: 20210520, end: 20210620
  2. ZOFRAN [Concomitant]
     Active Substance: ONDANSETRON HYDROCHLORIDE
  3. SAMSUNG WATCH ECG [Concomitant]
  4. MULTIVITAMIN [Concomitant]
     Active Substance: VITAMINS
  5. LEVOTHYROXINE. [Concomitant]
     Active Substance: LEVOTHYROXINE
  6. CLARITIN [Concomitant]
     Active Substance: LORATADINE
  7. ALKA?SELTZER [Concomitant]
     Active Substance: ANHYDROUS CITRIC ACID\ASPIRIN\SODIUM BICARBONATE
  8. TUMS [Concomitant]
     Active Substance: CALCIUM CARBONATE

REACTIONS (23)
  - Anxiety [None]
  - Back pain [None]
  - Tachycardia [None]
  - Neck pain [None]
  - Allodynia [None]
  - Renal pain [None]
  - Taste disorder [None]
  - Lymph node pain [None]
  - Migraine [None]
  - Palpitations [None]
  - Fatigue [None]
  - Arthralgia [None]
  - Asthenia [None]
  - Jaw disorder [None]
  - Gastrointestinal pain [None]
  - Constipation [None]
  - Peripheral swelling [None]
  - Feeling abnormal [None]
  - Weight increased [None]
  - Nausea [None]
  - Myalgia [None]
  - Hyperaesthesia [None]
  - Lymphadenopathy [None]
